FAERS Safety Report 17216355 (Version 1)
Quarter: 2019Q4

REPORT INFORMATION
  Report Type: Spontaneous
  Country: DE (occurrence: DE)
  Receive Date: 20191230
  Receipt Date: 20191230
  Transmission Date: 20200122
  Serious: Yes (Other)
  Sender: FDA-Public Use
  Company Number: DE-GALDERMA-DE19071974

PATIENT
  Age: 60 Year
  Sex: Male

DRUGS (10)
  1. ETANERCEPT [Concomitant]
     Active Substance: ETANERCEPT
     Indication: PYREXIA
  2. DOXYCYCLINE. [Suspect]
     Active Substance: DOXYCYCLINE
     Indication: WHIPPLE^S DISEASE
     Route: 065
  3. METHOTREXATE. [Concomitant]
     Active Substance: METHOTREXATE
     Indication: POLYARTHRITIS
     Route: 065
  4. SULFAMETHOXAZOLE/TRIMETHOPRIM [Concomitant]
     Active Substance: SULFAMETHOXAZOLE\TRIMETHOPRIM
     Indication: WHIPPLE^S DISEASE
     Route: 065
  5. CHLOROQUINE. [Concomitant]
     Active Substance: CHLOROQUINE
     Indication: WHIPPLE^S DISEASE
     Route: 065
  6. CORTICOSTEROIDS [Concomitant]
     Active Substance: CORTICOSTEROID NOS
     Indication: POLYARTHRITIS
     Route: 065
  7. PENICILLIN [Concomitant]
     Active Substance: PENICILLIN
     Indication: PYREXIA
     Route: 065
  8. CORTICOSTEROIDS [Concomitant]
     Active Substance: CORTICOSTEROID NOS
     Indication: PYREXIA
  9. ETANERCEPT [Concomitant]
     Active Substance: ETANERCEPT
     Indication: POLYARTHRITIS
     Route: 065
  10. METHOTREXATE. [Concomitant]
     Active Substance: METHOTREXATE
     Indication: PYREXIA

REACTIONS (2)
  - Drug effective for unapproved indication [Recovered/Resolved]
  - Intentional product use issue [Recovered/Resolved]
